FAERS Safety Report 5863096-6 (Version None)
Quarter: 2008Q3

REPORT INFORMATION
  Report Type: 
  Country: None (occurrence: None)
  Receive Date: 20080818
  Receipt Date: 20080501
  Transmission Date: 20090109
  Serious: No
  Sender: FDA-Public Use
  Company Number: WAES 0805USA00493

PATIENT
  Age: 81 Year
  Sex: Female
  Weight: 69.4003 kg

DRUGS (11)
  1. JANUVIA [Suspect]
     Indication: TYPE 2 DIABETES MELLITUS
     Dosage: PO ; 50 MG/DAILY/PO
     Route: 048
     Dates: start: 20080101
  2. JANUVIA [Suspect]
     Indication: TYPE 2 DIABETES MELLITUS
     Dosage: PO ; 50 MG/DAILY/PO
     Route: 048
     Dates: start: 20080328
  3. COUMADIN [Concomitant]
  4. NORVASC [Concomitant]
  5. PRAVACHOL [Concomitant]
  6. REMICADE [Concomitant]
  7. STARLIX [Concomitant]
  8. AMIODARONE HCL [Concomitant]
  9. BENAZEPRIL HYDROCHLORIDE [Concomitant]
  10. HYDROCHLOROTHIAZIDE [Concomitant]
  11. POTASSIUM (UNSPECIFIED) [Concomitant]

REACTIONS (2)
  - RHINORRHOEA [None]
  - WRONG TECHNIQUE IN DRUG USAGE PROCESS [None]
